FAERS Safety Report 8503010 (Version 2)
Quarter: 2014Q1

REPORT INFORMATION
  Report Type: Report from Study
  Country: PL (occurrence: PL)
  Receive Date: 20120404
  Receipt Date: 20140205
  Transmission Date: 20141002
  Serious: Yes (Death, Hospitalization)
  Sender: FDA-Public Use
  Company Number: PL-ROCHE-1055948

PATIENT
  Age: 72 Year
  Sex: Male
  Weight: 71.3 kg

DRUGS (5)
  1. METHOXY POLYETHYLENE GLYCOL-EPOETIN BETA [Suspect]
     Indication: ANAEMIA
     Route: 058
     Dates: start: 20120121, end: 20120320
  2. CILAZAPRIL [Concomitant]
     Indication: HYPERTENSION
     Route: 048
     Dates: start: 20111220, end: 20120330
  3. PENTOXIFILINA [Concomitant]
     Indication: ARTERIOSCLEROSIS
     Route: 048
     Dates: start: 20111220, end: 20120330
  4. FUROSEMIDUM [Concomitant]
     Indication: RENAL FAILURE
     Route: 048
     Dates: start: 20111220, end: 20120330
  5. AMLODIPIN [Concomitant]
     Indication: HYPERTENSION
     Route: 048
     Dates: start: 20111220, end: 20120330

REACTIONS (1)
  - Cardiac arrest [Fatal]
